FAERS Safety Report 19299692 (Version 1)
Quarter: 2021Q2

REPORT INFORMATION
  Report Type: Spontaneous
  Country: CN (occurrence: CN)
  Receive Date: 20210525
  Receipt Date: 20210525
  Transmission Date: 20210717
  Serious: Yes (Other)
  Sender: FDA-Public Use
  Company Number: CN-ROCHE-2830316

PATIENT
  Sex: Male
  Weight: 58 kg

DRUGS (1)
  1. PEGASYS [Suspect]
     Active Substance: PEGINTERFERON ALFA-2A
     Indication: CHRONIC HEPATITIS B
     Route: 059
     Dates: start: 20201229

REACTIONS (5)
  - Autoimmune disorder [Unknown]
  - Asthenia [Unknown]
  - Myalgia [Unknown]
  - Neutrophil count decreased [Unknown]
  - Myelosuppression [Unknown]

NARRATIVE: CASE EVENT DATE: 20210429
